FAERS Safety Report 8691685 (Version 3)
Quarter: 2012Q4

REPORT INFORMATION
  Report Type: 
  Country: JP (occurrence: JP)
  Receive Date: 20120730
  Receipt Date: 20120905
  Transmission Date: 20130627
  Serious: Yes (Hospitalization)
  Sender: FDA-Public Use
  Company Number: JP-ELI_LILLY_AND_COMPANY-JP201206000997

PATIENT
  Age: 88 Year
  Sex: Male

DRUGS (3)
  1. FORTEO [Suspect]
     Dosage: UNK
     Route: 058
     Dates: start: 20120530, end: 20120601
  2. FORTEO [Suspect]
     Dosage: UNK
     Route: 058
     Dates: end: 201207
  3. FORTEO [Suspect]
     Dosage: UNK
     Route: 058

REACTIONS (6)
  - Dehydration [Not Recovered/Not Resolved]
  - Heat illness [Recovering/Resolving]
  - Decreased appetite [Unknown]
  - Insomnia [Unknown]
  - Blood pressure decreased [Not Recovered/Not Resolved]
  - Nausea [Unknown]
